FAERS Safety Report 5893733-1 (Version None)
Quarter: 2008Q3

REPORT INFORMATION
  Report Type: 
  Country: None (occurrence: None)
  Receive Date: 20080918
  Receipt Date: 20080905
  Transmission Date: 20090109
  Serious: Yes (Death, Life-Threatening)
  Sender: FDA-Public Use
  Company Number: 004343

PATIENT
  Age: 53 Year
  Sex: Female

DRUGS (7)
  1. BUSULFEX [Suspect]
     Indication: STEM CELL TRANSPLANT
     Dosage: 27.2 ML, INTRAVENOUS
     Route: 042
     Dates: start: 20071003, end: 20071004
  2. CYCLOSPORINE [Suspect]
  3. FLUDARABINE PHOSPHATE [Concomitant]
  4. VALPROATE SODIUM [Concomitant]
  5. NARTOGRASTIM (NARTOGRASTIM) [Concomitant]
  6. METHOTREXATE [Concomitant]
  7. METHYLPREDNISOLONE [Concomitant]

REACTIONS (11)
  - ACUTE GRAFT VERSUS HOST DISEASE [None]
  - ANOREXIA [None]
  - DIARRHOEA [None]
  - HYPERGLYCAEMIA [None]
  - KLEBSIELLA SEPSIS [None]
  - LIVER DISORDER [None]
  - MALAISE [None]
  - NAUSEA [None]
  - PNEUMONIA KLEBSIELLA [None]
  - STEM CELL TRANSPLANT [None]
  - VOMITING [None]
